FAERS Safety Report 6022986-4 (Version None)
Quarter: 2008Q4

REPORT INFORMATION
  Report Type: 
  Country: None (occurrence: None)
  Receive Date: 20081230
  Receipt Date: 20080418
  Transmission Date: 20090506
  Serious: Yes (Other)
  Sender: FDA-Public Use
  Company Number: US-ABBOTT-08P-163-0448114-00

PATIENT
  Sex: Male
  Weight: 22.7 kg

DRUGS (2)
  1. OMNICEF [Suspect]
     Indication: SINUSITIS
     Dosage: ONCE PER DAY
     Route: 048
     Dates: start: 20080305, end: 20080315
  2. NARINE [Concomitant]
     Indication: HYPERSENSITIVITY
     Route: 048
     Dates: start: 20050101

REACTIONS (13)
  - ABASIA [None]
  - ANGIOEDEMA [None]
  - ARTHRALGIA [None]
  - ARTHRITIS [None]
  - DYSPNOEA [None]
  - DYSSTASIA [None]
  - ERYTHEMA MULTIFORME [None]
  - FALL [None]
  - HYPERSENSITIVITY [None]
  - LABORATORY TEST ABNORMAL [None]
  - PRURITUS GENERALISED [None]
  - RASH [None]
  - SKIN DISCOLOURATION [None]
